FAERS Safety Report 20358264 (Version 3)
Quarter: 2023Q2

REPORT INFORMATION
  Report Type: Spontaneous
  Country: US (occurrence: US)
  Receive Date: 20220120
  Receipt Date: 20230421
  Transmission Date: 20230722
  Serious: Yes (Other)
  Sender: FDA-Public Use
  Company Number: US-GILEAD-2022-0565860

PATIENT
  Sex: Female
  Weight: 81.633 kg

DRUGS (38)
  1. TRUVADA [Suspect]
     Active Substance: EMTRICITABINE\TENOFOVIR DISOPROXIL FUMARATE
     Indication: HIV infection
     Dosage: UNK
     Route: 048
     Dates: start: 200410, end: 201804
  2. BIKTARVY [Concomitant]
     Active Substance: BICTEGRAVIR SODIUM\EMTRICITABINE\TENOFOVIR ALAFENAMIDE FUMARATE
  3. CALCIUM\VITAMIN D [Concomitant]
     Active Substance: CALCIUM\VITAMIN D
  4. NORVIR [Concomitant]
     Active Substance: RITONAVIR
  5. REYATAZ [Concomitant]
     Active Substance: ATAZANAVIR SULFATE
  6. VIRACEPT [Concomitant]
     Active Substance: NELFINAVIR MESYLATE
  7. AMMONIUM LACTATE [Concomitant]
     Active Substance: AMMONIUM LACTATE
  8. ASPIRIN [Concomitant]
     Active Substance: ASPIRIN
  9. AZELASTINE HYDROCHLORIDE [Concomitant]
     Active Substance: AZELASTINE HYDROCHLORIDE
  10. CLINDAMYCIN [Concomitant]
     Active Substance: CLINDAMYCIN
  11. CRESTOR [Concomitant]
     Active Substance: ROSUVASTATIN CALCIUM
  12. ACYCLOVIR [Concomitant]
     Active Substance: ACYCLOVIR
  13. DAPSONE [Concomitant]
     Active Substance: DAPSONE
  14. DIOVAN [Concomitant]
     Active Substance: VALSARTAN
  15. DIPHENHYDRAMINE [Concomitant]
     Active Substance: DIPHENHYDRAMINE
  16. FAMOTIDINE [Concomitant]
     Active Substance: FAMOTIDINE
  17. GABAPENTIN [Concomitant]
     Active Substance: GABAPENTIN
  18. HYDROCHLOROTHIAZIDE [Concomitant]
     Active Substance: HYDROCHLOROTHIAZIDE
  19. HYDROXYZINE [Concomitant]
     Active Substance: HYDROXYZINE HYDROCHLORIDE
  20. LIPITOR [Concomitant]
     Active Substance: ATORVASTATIN CALCIUM
  21. LOPERAMIDE [Concomitant]
     Active Substance: LOPERAMIDE
  22. LOVAZA [Concomitant]
     Active Substance: OMEGA-3-ACID ETHYL ESTERS
  23. MEDROXYPROGESTERONE [Concomitant]
     Active Substance: MEDROXYPROGESTERONE
  24. MELOXICAM [Concomitant]
     Active Substance: MELOXICAM
  25. METFORMIN [Concomitant]
     Active Substance: METFORMIN HYDROCHLORIDE
  26. METOPROLOL [Concomitant]
     Active Substance: METOPROLOL
  27. MOMETASONE [Concomitant]
     Active Substance: MOMETASONE
  28. OMEPRAZOLE [Concomitant]
     Active Substance: OMEPRAZOLE
  29. RANEXA [Concomitant]
     Active Substance: RANOLAZINE
  30. RANITIDINE [Concomitant]
     Active Substance: RANITIDINE
  31. SULFAMETHOXAZOLE AND TRIMETHOPRIM [Concomitant]
     Active Substance: SULFAMETHOXAZOLE\TRIMETHOPRIM
  32. TRETINOIN [Concomitant]
     Active Substance: TRETINOIN
  33. TRULICITY [Concomitant]
     Active Substance: DULAGLUTIDE
  34. VALSARTAN [Concomitant]
     Active Substance: VALSARTAN
  35. VASCEPA [Concomitant]
     Active Substance: ICOSAPENT ETHYL
  36. VITAMIN C [Concomitant]
     Active Substance: ASCORBIC ACID
  37. FARXIGA [Concomitant]
     Active Substance: DAPAGLIFLOZIN PROPANEDIOL
  38. FISH OIL [Concomitant]
     Active Substance: FISH OIL

REACTIONS (10)
  - Osteoporosis [Not Recovered/Not Resolved]
  - Osteonecrosis [Not Recovered/Not Resolved]
  - Bone demineralisation [Unknown]
  - Pain [Not Recovered/Not Resolved]
  - Emotional distress [Not Recovered/Not Resolved]
  - Anxiety [Not Recovered/Not Resolved]
  - Anhedonia [Not Recovered/Not Resolved]
  - Foot fracture [Not Recovered/Not Resolved]
  - Depression [Unknown]
  - Ankle fracture [Not Recovered/Not Resolved]

NARRATIVE: CASE EVENT DATE: 20080101
